FAERS Safety Report 6086513-8 (Version None)
Quarter: 2009Q1

REPORT INFORMATION
  Report Type: 
  Country: None (occurrence: None)
  Receive Date: 20090223
  Receipt Date: 20090212
  Transmission Date: 20090719
  Serious: Yes (Hospitalization, Other)
  Sender: FDA-Public Use
  Company Number: FR-BAXTER-2007BH008526

PATIENT
  Age: 58 Year
  Sex: Male

DRUGS (3)
  1. IFOSFAMIDE [Suspect]
     Indication: SARCOMA
     Dosage: DOSE UNIT:UNKNOWN
     Route: 042
     Dates: start: 20061121, end: 20070112
  2. UROMITEXAN BAXTER [Suspect]
     Indication: SARCOMA
     Dosage: DOSE UNIT:UNKNOWN
     Route: 065
     Dates: start: 20061121, end: 20070112
  3. MICARDIS [Suspect]
     Indication: HYPERTENSION
     Route: 048
     Dates: start: 20070601, end: 20070801

REACTIONS (5)
  - ANAEMIA [None]
  - HYPERPARATHYROIDISM SECONDARY [None]
  - HYPERTENSION [None]
  - RENAL FAILURE [None]
  - TUBULOINTERSTITIAL NEPHRITIS [None]
